FAERS Safety Report 25993774 (Version 2)
Quarter: 2025Q4

REPORT INFORMATION
  Report Type: Spontaneous
  Country: CN (occurrence: CN)
  Receive Date: 20251104
  Receipt Date: 20251107
  Transmission Date: 20260117
  Serious: Yes (Death, Hospitalization, Other)
  Sender: JOHNSON AND JOHNSON
  Company Number: CN-JNJFOC-20251036335

PATIENT

DRUGS (1)
  1. OPSUMIT [Suspect]
     Active Substance: MACITENTAN
     Indication: Pulmonary arterial hypertension
     Route: 048

REACTIONS (15)
  - Death [Fatal]
  - Hospitalisation [Unknown]
  - Atrial fibrillation [Unknown]
  - Respiratory failure [Unknown]
  - Hypoacusis [Unknown]
  - Pain in jaw [Unknown]
  - Gout [Unknown]
  - Dyspnoea [Unknown]
  - Flushing [Unknown]
  - Hypotension [Unknown]
  - Oedema peripheral [Unknown]
  - Nasal congestion [Unknown]
  - Hepatic enzyme abnormal [Unknown]
  - Anaemia [Unknown]
  - Fluid retention [Unknown]
